FAERS Safety Report 23190368 (Version 2)
Quarter: 2023Q4

REPORT INFORMATION
  Report Type: Spontaneous
  Country: US (occurrence: US)
  Receive Date: 20231116
  Receipt Date: 20231123
  Transmission Date: 20240110
  Serious: Yes (Other)
  Sender: FDA-Public Use
  Company Number: US-TEVA-2023-US-2944213

PATIENT
  Age: 20 Year
  Sex: Female

DRUGS (5)
  1. LAMOTRIGINE [Interacting]
     Active Substance: LAMOTRIGINE
     Indication: Bipolar II disorder
     Dosage: 200 MILLIGRAM DAILY;
     Route: 065
  2. LAMOTRIGINE [Interacting]
     Active Substance: LAMOTRIGINE
     Indication: Depression
  3. ETHINYL ESTRADIOL\NORGESTIMATE [Interacting]
     Active Substance: ETHINYL ESTRADIOL\NORGESTIMATE
     Indication: Endometriosis
     Route: 048
  4. BUPROPION [Concomitant]
     Active Substance: BUPROPION
     Indication: Bipolar II disorder
     Dosage: 450 MILLIGRAM DAILY; FORMULATION: EXTENDED-RELEASE
     Route: 065
  5. BUPROPION [Concomitant]
     Active Substance: BUPROPION
     Indication: Depression

REACTIONS (2)
  - Depression [Unknown]
  - Drug interaction [Unknown]
